FAERS Safety Report 18678442 (Version 1)
Quarter: 2020Q4

REPORT INFORMATION
  Report Type: Spontaneous
  Country: US (occurrence: US)
  Receive Date: 20201230
  Receipt Date: 20201230
  Transmission Date: 20210114
  Serious: Yes (Death, Hospitalization)
  Sender: FDA-Public Use
  Company Number: US-JNJFOC-20201248268

PATIENT
  Age: 54 Year
  Sex: Male

DRUGS (3)
  1. ALCOHOL. [Suspect]
     Active Substance: ALCOHOL
     Indication: SUICIDE ATTEMPT
     Route: 048
  2. DURAGESIC [Suspect]
     Active Substance: FENTANYL
     Indication: SUICIDE ATTEMPT
     Route: 048
  3. DIAMORPHINE [Suspect]
     Active Substance: DIAMORPHINE
     Indication: SUICIDE ATTEMPT
     Route: 048

REACTIONS (2)
  - Intentional product use issue [Fatal]
  - Toxicity to various agents [Fatal]
